FAERS Safety Report 12434343 (Version 1)
Quarter: 2016Q2

REPORT INFORMATION
  Report Type: Spontaneous
  Country: IT (occurrence: IT)
  Receive Date: 20160603
  Receipt Date: 20160603
  Transmission Date: 20160815
  Serious: Yes (Hospitalization)
  Sender: FDA-Public Use
  Company Number: IT-FERRINGPH-2016FE02393

PATIENT

DRUGS (1)
  1. ZOMACTON [Suspect]
     Active Substance: SOMATROPIN
     Indication: GROWTH RETARDATION
     Dosage: 31 ?G/KG, DAILY
     Route: 058
     Dates: start: 20130401, end: 20160501

REACTIONS (3)
  - Osteonecrosis [Recovered/Resolved]
  - Inflammation [Recovered/Resolved]
  - Fibrous dysplasia of bone [Recovered/Resolved]

NARRATIVE: CASE EVENT DATE: 20160501
